FAERS Safety Report 5008692-3 (Version None)
Quarter: 2006Q2

REPORT INFORMATION
  Report Type: 
  Country: None (occurrence: None)
  Receive Date: 20060517
  Receipt Date: 20060503
  Transmission Date: 20061013
  Serious: Yes (Hospitalization, Other)
  Sender: FDA-Public Use
  Company Number: 224474

PATIENT
  Age: 62 Year
  Sex: Female

DRUGS (4)
  1. MABTHERA (RITUXIMAB) CONC FOR SOLUTION FOR INFUSION [Suspect]
     Indication: RHEUMATOID ARTHRITIS
     Dosage: 1000 MG, INTRAVENOUS
     Route: 042
     Dates: start: 20060124, end: 20060207
  2. METHOTREXATE [Concomitant]
  3. PREDNISOLONE [Concomitant]
  4. VERAPAMIL [Concomitant]

REACTIONS (3)
  - ATRIAL FIBRILLATION [None]
  - DEEP VEIN THROMBOSIS [None]
  - INFUSION RELATED REACTION [None]
